FAERS Safety Report 4934239-3 (Version None)
Quarter: 2006Q1

REPORT INFORMATION
  Report Type: 
  Country: None (occurrence: None)
  Receive Date: 20060303
  Receipt Date: 20060222
  Transmission Date: 20060701
  Serious: Yes (Hospitalization)
  Sender: FDA-Public Use
  Company Number: 2006026624

PATIENT
  Age: 67 Year
  Sex: Male
  Weight: 74 kg

DRUGS (2)
  1. HEPARIN SODIUM [Suspect]
     Indication: ILL-DEFINED DISORDER
     Dosage: SEE IMAGE, INTRAVENOUS BOLUS
     Route: 040
     Dates: start: 20041013, end: 20041013
  2. HEPARIN SODIUM [Suspect]
     Indication: ILL-DEFINED DISORDER
     Dosage: SEE IMAGE, INTRAVENOUS BOLUS
     Route: 040
     Dates: start: 20041013

REACTIONS (3)
  - ANGINA PECTORIS [None]
  - ATRIAL FIBRILLATION [None]
  - REFUSAL OF TREATMENT BY PATIENT [None]
